FAERS Safety Report 6745156-0 (Version None)
Quarter: 2010Q2

REPORT INFORMATION
  Report Type: 
  Country: None (occurrence: None)
  Receive Date: 20100526
  Receipt Date: 20100518
  Transmission Date: 20101027
  Serious: Yes (Hospitalization)
  Sender: FDA-Public Use
  Company Number: 2010SP001443

PATIENT
  Age: 62 Year
  Sex: Female
  Weight: 67.0416 kg

DRUGS (17)
  1. CICLESONIDE HFA (160 UG) [Suspect]
     Indication: RHINITIS PERENNIAL
     Dosage: 160 UG;QD; NASAL
     Route: 045
     Dates: start: 20100323
  2. ENALAPRIL [Concomitant]
  3. PRAVASTATIN [Concomitant]
  4. MULTI-VITAMINS [Concomitant]
  5. ASPIRIN [Concomitant]
  6. CINNAMON [Concomitant]
  7. MIRALAX [Concomitant]
  8. PRILOSEC [Concomitant]
  9. OTHER IMMUNOSUPRESSIVE AGENTS [Concomitant]
  10. XYZAL [Concomitant]
  11. ALLEGRA [Concomitant]
  12. IBUPROFEN [Concomitant]
  13. ALEVE (CAPLET) [Concomitant]
  14. GLUCOSAMINE [Concomitant]
  15. VITAMIN D [Concomitant]
  16. CITRACAL [Concomitant]
  17. BLINDED THERAPY (PREV.) [Concomitant]

REACTIONS (2)
  - ENDOMETRIAL HYPERTROPHY [None]
  - UTERINE LEIOMYOMA [None]
